FAERS Safety Report 20024955 (Version 1)
Quarter: 2021Q4

REPORT INFORMATION
  Report Type: Report from Study
  Country: US (occurrence: US)
  Receive Date: 20211102
  Receipt Date: 20211102
  Transmission Date: 20220303
  Serious: Yes (Hospitalization, Other)
  Sender: FDA-Public Use
  Company Number: US-JAZZ-2021-US-016578

PATIENT
  Sex: Male

DRUGS (7)
  1. XYREM [Suspect]
     Active Substance: SODIUM OXYBATE
     Indication: Narcolepsy
     Dosage: 2.25 GRAM
     Route: 048
     Dates: start: 202001, end: 202001
  2. XYREM [Suspect]
     Active Substance: SODIUM OXYBATE
     Dosage: DOSE ADJUSTMENTS
     Route: 048
     Dates: start: 202001, end: 202107
  3. XYREM [Suspect]
     Active Substance: SODIUM OXYBATE
     Dosage: 3.25 GRAM, BID (FIRST AND SECOND DOSE)
     Route: 048
     Dates: start: 202107, end: 2021
  4. XYREM [Suspect]
     Active Substance: SODIUM OXYBATE
     Dosage: 2.5-3 GRAMS, THIRD DOSE
     Route: 048
     Dates: start: 202107, end: 2021
  5. XYREM [Suspect]
     Active Substance: SODIUM OXYBATE
     Dosage: 3 GRAM, TID
     Route: 048
     Dates: start: 2021
  6. PROVIGIL [Suspect]
     Active Substance: MODAFINIL
     Indication: Product used for unknown indication
  7. MODAFINIL [Suspect]
     Active Substance: MODAFINIL
     Indication: Product used for unknown indication

REACTIONS (6)
  - Suicidal ideation [Recovered/Resolved]
  - Tachycardia [Recovering/Resolving]
  - Muscle spasms [Unknown]
  - Dyspnoea [Unknown]
  - Somnambulism [Unknown]
  - Intentional product use issue [Unknown]
